FAERS Safety Report 13452474 (Version 1)
Quarter: 2017Q2

REPORT INFORMATION
  Report Type: Spontaneous
  Country: US (occurrence: US)
  Receive Date: 20170418
  Receipt Date: 20170418
  Transmission Date: 20170830
  Serious: No
  Sender: FDA-Public Use
  Company Number: US-TEVA-648574USA

PATIENT
  Sex: Female

DRUGS (4)
  1. LANSOPRAZOLE DELAYED RELEASE [Suspect]
     Active Substance: LANSOPRAZOLE
  2. DILTIAZEM HCL EXTE-REL [Suspect]
     Active Substance: DILTIAZEM HYDROCHLORIDE
  3. WARFARIN [Suspect]
     Active Substance: WARFARIN
     Route: 065
  4. FUROSEMIDE. [Suspect]
     Active Substance: FUROSEMIDE
     Route: 065

REACTIONS (2)
  - Pruritus [Unknown]
  - Abdominal pain upper [Unknown]
